FAERS Safety Report 25243822 (Version 3)
Quarter: 2025Q3

REPORT INFORMATION
  Report Type: Spontaneous
  Country: EU (occurrence: EU)
  Receive Date: 20250428
  Receipt Date: 20250809
  Transmission Date: 20251021
  Serious: Yes (Hospitalization)
  Sender: ALEXION PHARMACEUTICALS
  Company Number: EU-ASTRAZENECA-202504GLO022262DE

PATIENT
  Age: 76 Year
  Sex: Male

DRUGS (6)
  1. ESOMEPRAZOLE [Suspect]
     Active Substance: ESOMEPRAZOLE
     Indication: Barrett^s oesophagus
     Route: 065
  2. VALSARTAN [Concomitant]
     Active Substance: VALSARTAN
     Indication: Hypertonia
     Route: 065
  3. VALSARTAN [Concomitant]
     Active Substance: VALSARTAN
  4. MANIDIPINE [Concomitant]
     Active Substance: MANIDIPINE
     Indication: Hypertonia
  5. METFORMIN [Concomitant]
     Active Substance: METFORMIN HYDROCHLORIDE
     Indication: Diabetes mellitus
     Route: 065
  6. METFORMIN [Concomitant]
     Active Substance: METFORMIN HYDROCHLORIDE

REACTIONS (2)
  - Transient ischaemic attack [Recovered/Resolved]
  - Hypomagnesaemia [Recovered/Resolved]
